FAERS Safety Report 5788290-4 (Version None)
Quarter: 2008Q2

REPORT INFORMATION
  Report Type: 
  Country: None (occurrence: None)
  Receive Date: 20080625
  Receipt Date: 20080623
  Transmission Date: 20081010
  Serious: Yes (Hospitalization)
  Sender: FDA-Public Use
  Company Number: FR-MERCK-0806FRA00060

PATIENT
  Age: 72 Year
  Sex: Male

DRUGS (8)
  1. HYZAAR [Suspect]
     Indication: HYPERTENSION
     Route: 048
     Dates: start: 20071127, end: 20080118
  2. COZAAR [Suspect]
     Indication: HYPERTENSION
     Route: 048
     Dates: start: 20060815, end: 20080118
  3. PYRIDOSTIGMINE BROMIDE [Concomitant]
     Route: 048
     Dates: start: 20071218
  4. ACARBOSE [Concomitant]
     Indication: DIABETES MELLITUS
     Route: 048
     Dates: start: 20071112
  5. CALCIFEDIOL [Concomitant]
     Route: 048
     Dates: start: 20071127
  6. ATORVASTATIN CALCIUM [Concomitant]
     Indication: DYSLIPIDAEMIA
     Route: 048
     Dates: start: 20070615
  7. ASPIRIN LYSINE [Concomitant]
     Route: 048
     Dates: start: 20070315
  8. DILTIAZEM HYDROCHLORIDE [Concomitant]
     Route: 048

REACTIONS (2)
  - NECROSIS [None]
  - VASCULAR PURPURA [None]
